FAERS Safety Report 8611496-3 (Version None)
Quarter: 2012Q3

REPORT INFORMATION
  Report Type: 
  Country: None (occurrence: None)
  Receive Date: 20120822
  Receipt Date: 20120813
  Transmission Date: 20120928
  Serious: Yes (Other)
  Sender: FDA-Public Use
  Company Number: CA-ABBOTT-12P-028-0968338-00

PATIENT
  Sex: Female
  Weight: 54.026 kg

DRUGS (10)
  1. HUMIRA [Suspect]
     Route: 058
     Dates: start: 20120810
  2. METHOTREXATE [Concomitant]
     Indication: RHEUMATOID ARTHRITIS
     Route: 048
     Dates: start: 20040101
  3. HUMIRA [Suspect]
     Indication: RHEUMATOID ARTHRITIS
     Route: 058
     Dates: start: 20040223, end: 20120101
  4. MORPHINE [Suspect]
     Indication: PRODUCT USED FOR UNKNOWN INDICATION
  5. FOLIC ACID [Concomitant]
     Indication: DRUG THERAPY
     Route: 048
     Dates: start: 20040101
  6. CALCIUM CALTRATE [Concomitant]
     Indication: MINERAL SUPPLEMENTATION
     Route: 048
  7. VITAMIN B-12 [Concomitant]
     Indication: VITAMIN B12 DEFICIENCY
     Route: 048
  8. OXYCET [Concomitant]
     Indication: RHEUMATOID ARTHRITIS
  9. CELEBREX [Concomitant]
     Indication: RHEUMATOID ARTHRITIS
     Route: 048
  10. CENTRUM ADVANTAGE [Concomitant]
     Indication: VITAMIN SUPPLEMENTATION
     Route: 048

REACTIONS (23)
  - LACERATION [None]
  - MUSCULOSKELETAL PAIN [None]
  - ARTHRALGIA [None]
  - SINUSITIS [None]
  - FEELING HOT [None]
  - JOINT RANGE OF MOTION DECREASED [None]
  - SPINAL COMPRESSION FRACTURE [None]
  - SKIN DISCOLOURATION [None]
  - OEDEMA PERIPHERAL [None]
  - POOR PERIPHERAL CIRCULATION [None]
  - CORNEAL DISORDER [None]
  - OSTEOPOROSIS [None]
  - CYSTITIS [None]
  - INFLAMMATION [None]
  - PAIN [None]
  - DRUG HYPERSENSITIVITY [None]
  - CATARACT [None]
  - WEIGHT DECREASED [None]
  - FALL [None]
  - VISUAL IMPAIRMENT [None]
  - PAIN IN EXTREMITY [None]
  - VOMITING [None]
  - HYPOPHAGIA [None]
